FAERS Safety Report 5907017-6 (Version None)
Quarter: 2008Q4

REPORT INFORMATION
  Report Type: 
  Country: None (occurrence: None)
  Receive Date: 20081003
  Receipt Date: 20080926
  Transmission Date: 20090506
  Serious: Yes (Hospitalization)
  Sender: FDA-Public Use
  Company Number: US-BRISTOL-MYERS SQUIBB COMPANY-14349724

PATIENT
  Age: 68 Year
  Sex: Male
  Weight: 96 kg

DRUGS (6)
  1. IXEMPRA KIT [Suspect]
     Indication: PROSTATE CANCER
     Route: 042
     Dates: start: 20080904, end: 20080904
  2. MITOXANTRONE [Suspect]
     Indication: PROSTATE CANCER
     Route: 042
     Dates: start: 20080904, end: 20080904
  3. PREDNISONE [Suspect]
     Indication: PROSTATE CANCER
     Route: 048
     Dates: start: 20080904, end: 20080904
  4. ATACAND HCT [Suspect]
     Dosage: 1 DF = 32/12.5MG 1/2 TABLET
  5. ATENOLOL [Suspect]
  6. NEULASTA [Concomitant]
     Indication: PROSTATE CANCER
     Route: 042
     Dates: start: 20080905, end: 20080905

REACTIONS (3)
  - ATRIOVENTRICULAR BLOCK FIRST DEGREE [None]
  - DEHYDRATION [None]
  - NEUTROPENIA [None]
